FAERS Safety Report 9587018 (Version 1)
Quarter: 2013Q4

REPORT INFORMATION
  Report Type: Spontaneous
  Country: US (occurrence: US)
  Receive Date: 20131003
  Receipt Date: 20131003
  Transmission Date: 20140711
  Serious: Yes (Other)
  Sender: FDA-Public Use
  Company Number: US-PFIZER INC-2013281471

PATIENT
  Age: 68 Year
  Sex: Male
  Weight: 73.02 kg

DRUGS (5)
  1. LYRICA [Suspect]
     Indication: FIBROMYALGIA
     Dosage: 200 MG, (BY TAKING TWO CAPSULES OF 100 MG) 1X/DAY
     Route: 048
     Dates: start: 2007
  2. LYRICA [Suspect]
     Dosage: 600 MG, (BY TAKING TWO CAPSULES OF 300MG) 1X/DAY
     Route: 048
     Dates: end: 201308
  3. LYRICA [Suspect]
     Dosage: UNK, 1X/DAY
     Route: 048
  4. LYRICA [Suspect]
     Dosage: 400 MG, (BY TAKING FOUR CAPSULES OF 100 MG) 1X/DAY
     Route: 048
     Dates: start: 201308
  5. PREDNISONE [Concomitant]
     Dosage: UNK

REACTIONS (4)
  - Intentional drug misuse [Unknown]
  - Activities of daily living impaired [Unknown]
  - Depression [Unknown]
  - Disturbance in attention [Unknown]
